FAERS Safety Report 13855347 (Version 6)
Quarter: 2019Q1

REPORT INFORMATION
  Report Type: Spontaneous
  Country: US (occurrence: US)
  Receive Date: 20170810
  Receipt Date: 20190205
  Transmission Date: 20190417
  Serious: No
  Sender: FDA-Public Use
  Company Number: US-VIFOR (INTERNATIONAL) INC.-VIT-2017-05244

PATIENT
  Age: 86 Year
  Sex: Female
  Weight: 73.55 kg

DRUGS (14)
  1. ASPIRIN 81 [Concomitant]
     Active Substance: ASPIRIN
  2. HYDRALAZINE HCL [Concomitant]
     Active Substance: HYDRALAZINE HYDROCHLORIDE
  3. FERREX 150 FORTE [Concomitant]
     Active Substance: CYANOCOBALAMIN\FOLIC ACID\IRON
  4. OMEPRAZOLE. [Concomitant]
     Active Substance: OMEPRAZOLE
  5. METFORMIN HCL [Concomitant]
     Active Substance: METFORMIN HYDROCHLORIDE
  6. VITAMIN B12 [Concomitant]
     Active Substance: CYANOCOBALAMIN
  7. VITAMIN D3 [Concomitant]
     Active Substance: CHOLECALCIFEROL
  8. GLIPIZIDE. [Concomitant]
     Active Substance: GLIPIZIDE
  9. VELTASSA [Suspect]
     Active Substance: PATIROMER
     Indication: HYPERKALAEMIA
     Route: 048
  10. VELTASSA [Suspect]
     Active Substance: PATIROMER
     Indication: FLUID OVERLOAD
     Route: 048
     Dates: start: 20160611
  11. VELTASSA [Suspect]
     Active Substance: PATIROMER
     Indication: HYPERTENSIVE NEPHROPATHY
  12. ATORVASTATIN CALCIUM. [Concomitant]
     Active Substance: ATORVASTATIN CALCIUM
  13. LYRICA [Concomitant]
     Active Substance: PREGABALIN
  14. SYNTHROID [Concomitant]
     Active Substance: LEVOTHYROXINE SODIUM

REACTIONS (6)
  - Joint swelling [Not Recovered/Not Resolved]
  - Peripheral swelling [Not Recovered/Not Resolved]
  - Arthralgia [Not Recovered/Not Resolved]
  - Off label use [Unknown]
  - Product dose omission [Not Recovered/Not Resolved]
  - Pain in extremity [Not Recovered/Not Resolved]

NARRATIVE: CASE EVENT DATE: 20160611
